FAERS Safety Report 18619728 (Version 1)
Quarter: 2020Q4

REPORT INFORMATION
  Report Type: Report from Study
  Country: BR (occurrence: BR)
  Receive Date: 20201215
  Receipt Date: 20201215
  Transmission Date: 20210114
  Serious: Yes (Hospitalization)
  Sender: FDA-Public Use
  Company Number: BR-BIOGEN-2020BI00955070

PATIENT
  Age: 3 Year
  Sex: Female

DRUGS (1)
  1. SPINRAZA [Suspect]
     Active Substance: NUSINERSEN
     Indication: SPINAL MUSCULAR ATROPHY
     Route: 037
     Dates: start: 20200313

REACTIONS (3)
  - Cerebrospinal fluid leakage [Unknown]
  - Weight gain poor [Not Recovered/Not Resolved]
  - Intracranial hypotension [Recovered/Resolved]

NARRATIVE: CASE EVENT DATE: 20200313
